FAERS Safety Report 17676863 (Version 3)
Quarter: 2020Q2

REPORT INFORMATION
  Report Type: Spontaneous
  Country: US (occurrence: US)
  Receive Date: 20200416
  Receipt Date: 20200610
  Transmission Date: 20200714
  Serious: Yes (Hospitalization)
  Sender: FDA-Public Use
  Company Number: US-NOVOPROD-722814

PATIENT
  Age: 65 Year
  Sex: Female

DRUGS (2)
  1. LEVEMIR [Suspect]
     Active Substance: INSULIN DETEMIR
     Indication: TYPE 2 DIABETES MELLITUS
     Dosage: UNK
     Route: 058
     Dates: start: 2016
  2. NOVOLOG [Suspect]
     Active Substance: INSULIN ASPART
     Indication: TYPE 2 DIABETES MELLITUS
     Dosage: 2 UNITS/DOSE, 1-4 UNITS
     Route: 058
     Dates: start: 2016

REACTIONS (6)
  - Hyperglycaemic unconsciousness [Recovered/Resolved]
  - Diarrhoea [Recovered/Resolved]
  - Vein disorder [Recovered/Resolved]
  - Glycosylated haemoglobin increased [Unknown]
  - Product dose omission [Unknown]
  - Dehydration [Recovered/Resolved]

NARRATIVE: CASE EVENT DATE: 2019
